FAERS Safety Report 4484860-4 (Version None)
Quarter: 2004Q3

REPORT INFORMATION
  Report Type: 
  Country: None (occurrence: None)
  Receive Date: 20040921
  Receipt Date: 20030912
  Transmission Date: 20050211
  Serious: Yes (Hospitalization)
  Sender: FDA-Public Use
  Company Number: 163-20785-03090381 (0)

PATIENT
  Age: 75 Year
  Sex: Female
  Weight: 51.2565 kg

DRUGS (6)
  1. THALOMID [Suspect]
     Indication: HEPATIC NEOPLASM MALIGNANT
     Dosage: 200 MG, DAYS 1-21 DAILY, ORAL
     Route: 048
     Dates: start: 20030520
  2. EPIRUBICIN [Suspect]
     Indication: HEPATIC NEOPLASM MALIGNANT
     Dosage: 15 MG/M2, DAYS 1,8, 15, INTRAVENOUS
     Route: 042
     Dates: start: 20030520
  3. CELEBREX [Concomitant]
  4. MEGACE [Concomitant]
  5. MARINOL [Concomitant]
  6. DILAUDID [Concomitant]

REACTIONS (5)
  - ARRHYTHMIA [None]
  - ASPARTATE AMINOTRANSFERASE INCREASED [None]
  - BRADYCARDIA [None]
  - CHEST PAIN [None]
  - ELECTROCARDIOGRAM ABNORMAL [None]
